FAERS Safety Report 5321179-3 (Version None)
Quarter: 2007Q2

REPORT INFORMATION
  Report Type: 
  Country: None (occurrence: None)
  Receive Date: 20070507
  Receipt Date: 20070507
  Transmission Date: 20071010
  Serious: Yes (Hospitalization)
  Sender: FDA-Public Use
  Company Number: None

PATIENT
  Age: 33 Year
  Sex: Female
  Weight: 65.7716 kg

DRUGS (2)
  1. POLYETHYLENE GLYCOL [Suspect]
     Indication: CONSTIPATION
     Dosage: 1 PACK IN WATER   ONCE DAILY  ORALLY
     Route: 048
     Dates: start: 20070427
  2. POLYETHYLENE GLYCOL [Suspect]
     Indication: PREGNANCY
     Dosage: 1 PACK IN WATER   ONCE DAILY  ORALLY
     Route: 048
     Dates: start: 20070427

REACTIONS (6)
  - BLINDNESS [None]
  - CHEST PAIN [None]
  - DRUG EXPOSURE DURING PREGNANCY [None]
  - PRURITUS [None]
  - SWELLING FACE [None]
  - VOMITING [None]
